FAERS Safety Report 6724649-6 (Version None)
Quarter: 2010Q2

REPORT INFORMATION
  Report Type: 
  Country: None (occurrence: None)
  Receive Date: 20100511
  Receipt Date: 20100428
  Transmission Date: 20101027
  Serious: Yes (Hospitalization)
  Sender: FDA-Public Use
  Company Number: 7000744

PATIENT
  Age: 42 Year
  Sex: Male

DRUGS (2)
  1. REBIF [Suspect]
     Indication: MULTIPLE SCLEROSIS
     Dosage: 8.8 MCG, 3 IN 1 WK, SUBCUTANEOUS
     Route: 058
     Dates: start: 20100322, end: 20100401
  2. UNSPECIFIED MEDICATIONS (ALL OTHER THERAPEUTIC PRODUCTS) [Concomitant]

REACTIONS (10)
  - ASTHENIA [None]
  - BACK PAIN [None]
  - CHEST PAIN [None]
  - CONSTIPATION [None]
  - DRUG INEFFECTIVE [None]
  - IMPAIRED SELF-CARE [None]
  - NECK PAIN [None]
  - PAIN IN EXTREMITY [None]
  - VISUAL IMPAIRMENT [None]
  - WALKING AID USER [None]
